FAERS Safety Report 9700264 (Version 2)
Quarter: 2014Q2

REPORT INFORMATION
  Report Type: Spontaneous
  Country: US (occurrence: US)
  Receive Date: 20131121
  Receipt Date: 20140404
  Transmission Date: 20141212
  Serious: Yes (Hospitalization, Other)
  Sender: FDA-Public Use
  Company Number: US-BAYER-2013-141349

PATIENT
  Age: 27 Year
  Sex: Female
  Weight: 85.71 kg

DRUGS (2)
  1. YASMIN [Suspect]
     Dosage: UNK
  2. HYDROCODONE W/ACETAMINOPHEN [Concomitant]
     Dosage: 5-500 P.R.N. (AS NEEDED)
     Dates: start: 20060109

REACTIONS (2)
  - Pulmonary embolism [None]
  - Deep vein thrombosis [None]
